FAERS Safety Report 7508388-X (Version None)
Quarter: 2011Q2

REPORT INFORMATION
  Report Type: 
  Country: None (occurrence: None)
  Receive Date: 20110527
  Receipt Date: 20110523
  Transmission Date: 20111010
  Serious: Yes (Hospitalization)
  Sender: FDA-Public Use
  Company Number: DK-PFIZER INC-2011110954

PATIENT
  Age: 49 Year
  Sex: Male
  Weight: 85 kg

DRUGS (1)
  1. RELPAX [Suspect]
     Indication: HEADACHE
     Dosage: 40 MG (APPROXIMATELY 6 TABLETS/CALENDAR MONTH)
     Route: 048
     Dates: start: 20060501

REACTIONS (3)
  - POLLAKIURIA [None]
  - JOINT SWELLING [None]
  - ARTHRALGIA [None]
